FAERS Safety Report 13705122 (Version 1)
Quarter: 2017Q2

REPORT INFORMATION
  Report Type: Spontaneous
  Country: US (occurrence: US)
  Receive Date: 20170629
  Receipt Date: 20170629
  Transmission Date: 20170830
  Serious: No
  Sender: FDA-Public Use
  Company Number: None

PATIENT
  Age: 49 Year
  Sex: Female

DRUGS (1)
  1. SULPHASALAZINE [Suspect]
     Active Substance: SULFASALAZINE
     Indication: ALOPECIA
     Route: 048

REACTIONS (2)
  - Gastrointestinal pain [None]
  - Abdominal pain upper [None]
